FAERS Safety Report 8546239 (Version 2)
Quarter: 2013Q3

REPORT INFORMATION
  Report Type: Spontaneous
  Country: US (occurrence: US)
  Receive Date: 20120504
  Receipt Date: 20130806
  Transmission Date: 20140515
  Serious: Yes (Other)
  Sender: FDA-Public Use
  Company Number: US-PFIZER INC-2012105459

PATIENT
  Sex: Female

DRUGS (1)
  1. EFFEXOR XR [Suspect]
     Dosage: UNK

REACTIONS (6)
  - Arthropathy [Unknown]
  - Transfusion [Unknown]
  - Immunodeficiency [Unknown]
  - Progressive multiple sclerosis [Unknown]
  - Depression [Unknown]
  - Malaise [Unknown]
